FAERS Safety Report 7911798-X (Version None)
Quarter: 2011Q4

REPORT INFORMATION
  Report Type: 
  Country: None (occurrence: None)
  Receive Date: 20111114
  Receipt Date: 20111114
  Transmission Date: 20120403
  Serious: Yes (Other)
  Sender: FDA-Public Use
  Company Number: None

PATIENT
  Age: 53 Year
  Sex: Female
  Weight: 80.739 kg

DRUGS (2)
  1. CYMBALTA [Suspect]
     Indication: FIBROMYALGIA
     Dosage: 60 MG
     Route: 048
     Dates: start: 20090610, end: 20111110
  2. CYMBALTA [Suspect]
     Indication: PAIN
     Dosage: 60 MG
     Route: 048
     Dates: start: 20090610, end: 20111110

REACTIONS (12)
  - VISION BLURRED [None]
  - EYE MOVEMENT DISORDER [None]
  - DRUG WITHDRAWAL SYNDROME [None]
  - FEELING ABNORMAL [None]
  - IMPAIRED DRIVING ABILITY [None]
  - TINNITUS [None]
  - VERTIGO [None]
  - CRYING [None]
  - INSOMNIA [None]
  - DECREASED APPETITE [None]
  - PARAESTHESIA [None]
  - EMOTIONAL DISORDER [None]
